FAERS Safety Report 6961292-8 (Version None)
Quarter: 2010Q3

REPORT INFORMATION
  Report Type: 
  Country: None (occurrence: None)
  Receive Date: 20100901
  Receipt Date: 20100830
  Transmission Date: 20110219
  Serious: Yes (Hospitalization)
  Sender: FDA-Public Use
  Company Number: A0878392A

PATIENT
  Age: 59 Year
  Sex: Female

DRUGS (10)
  1. PROMACTA [Suspect]
     Indication: IDIOPATHIC THROMBOCYTOPENIC PURPURA
     Dosage: 50MG PER DAY
     Route: 048
     Dates: end: 20100825
  2. CYMBALTA [Concomitant]
  3. FOLIC ACID [Concomitant]
  4. EVISTA [Concomitant]
  5. LANTUS [Concomitant]
  6. HYDROCODONE [Concomitant]
  7. XANAX [Concomitant]
  8. METFORMIN [Concomitant]
  9. NEXIUM [Concomitant]
  10. LISINOPRIL [Concomitant]

REACTIONS (2)
  - MUSCULAR WEAKNESS [None]
  - SENSATION OF HEAVINESS [None]
